FAERS Safety Report 12273367 (Version 1)
Quarter: 2016Q2

REPORT INFORMATION
  Report Type: Spontaneous
  Country: DE (occurrence: DE)
  Receive Date: 20160415
  Receipt Date: 20160415
  Transmission Date: 20160815
  Serious: Yes (Life-Threatening, Hospitalization, Other)
  Sender: FDA-Public Use
  Company Number: DE-JNJFOC-20151100283

PATIENT
  Age: 65 Year
  Sex: Female
  Weight: 87 kg

DRUGS (4)
  1. COUMADIN [Concomitant]
     Active Substance: WARFARIN SODIUM
     Route: 065
  2. XARELTO [Suspect]
     Active Substance: RIVAROXABAN
     Indication: INTERNATIONAL NORMALISED RATIO ABNORMAL
     Route: 048
     Dates: start: 20140429, end: 20140522
  3. XARELTO [Suspect]
     Active Substance: RIVAROXABAN
     Indication: INTERNATIONAL NORMALISED RATIO ABNORMAL
     Route: 048
  4. WARFARIN [Concomitant]
     Active Substance: WARFARIN
     Route: 065

REACTIONS (2)
  - Large intestinal ulcer [Recovered/Resolved]
  - Rectal haemorrhage [Recovered/Resolved]

NARRATIVE: CASE EVENT DATE: 20140522
